FAERS Safety Report 7298435-5 (Version None)
Quarter: 2011Q1

REPORT INFORMATION
  Report Type: 
  Country: None (occurrence: None)
  Receive Date: 20110214
  Receipt Date: 20110214
  Transmission Date: 20110831
  Serious: Yes (Death)
  Sender: FDA-Public Use
  Company Number: None

PATIENT
  Sex: Male
  Weight: 58.1 kg

DRUGS (10)
  1. CISPLATIN [Suspect]
     Indication: LARYNGEAL CANCER
     Dosage: 120MG IV
     Route: 042
  2. MEGACE [Concomitant]
  3. DILAUDID [Concomitant]
  4. DOCETAXEL [Suspect]
     Dosage: 120MG IV
     Route: 042
  5. BENZONATATE [Concomitant]
  6. DEX [Concomitant]
  7. ONDANSERTRON HCL [Concomitant]
  8. COMPAZINE [Concomitant]
  9. RALTEGRAVIR 400MG BID [Suspect]
     Dosage: 400MG BID
  10. DOCUSATE [Concomitant]

REACTIONS (16)
  - VERTIGO [None]
  - ASPIRATION [None]
  - GENERAL PHYSICAL HEALTH DETERIORATION [None]
  - GASTRIC PERFORATION [None]
  - OXYGEN SATURATION DECREASED [None]
  - DIARRHOEA [None]
  - VOMITING [None]
  - FALL [None]
  - UNRESPONSIVE TO STIMULI [None]
  - RENAL FAILURE [None]
  - NEUTROPENIA [None]
  - ABDOMINAL INJURY [None]
  - ABDOMINAL PAIN [None]
  - ACIDOSIS [None]
  - HYPOTENSION [None]
  - CARDIO-RESPIRATORY ARREST [None]
